FAERS Safety Report 16387502 (Version 1)
Quarter: 2019Q2

REPORT INFORMATION
  Report Type: Spontaneous
  Country: US (occurrence: US)
  Receive Date: 20190426
  Receipt Date: 20190426
  Transmission Date: 20190711
  Serious: Yes (Other)
  Sender: FDA-Public Use
  Company Number: None

PATIENT
  Age: 79 Year
  Sex: Male
  Weight: 107.95 kg

DRUGS (9)
  1. COLCRYS [Concomitant]
     Active Substance: COLCHICINE
  2. CHERRY JUICE [Concomitant]
  3. ALLOPURINOL. [Concomitant]
     Active Substance: ALLOPURINOL
  4. BRILINTA [Suspect]
     Active Substance: TICAGRELOR
     Indication: HEART VALVE STENOSIS
     Dosage: ?          QUANTITY:90 MG MILLIGRAM(S);?
     Route: 048
     Dates: start: 20190104, end: 20190208
  5. LISINOPRIL. [Concomitant]
     Active Substance: LISINOPRIL
  6. METFORMIN [Concomitant]
     Active Substance: METFORMIN HYDROCHLORIDE
  7. FLECAINIDE [Concomitant]
     Active Substance: FLECAINIDE
  8. FLAXSEED OIL CAPSULES [Concomitant]
  9. CLONIDINE. [Concomitant]
     Active Substance: CLONIDINE

REACTIONS (3)
  - Hot flush [None]
  - Dyspnoea [None]
  - Gastric haemorrhage [None]

NARRATIVE: CASE EVENT DATE: 20190203
